FAERS Safety Report 8856704 (Version 2)
Quarter: 2013Q4

REPORT INFORMATION
  Report Type: Spontaneous
  Country: GB (occurrence: None)
  Receive Date: 20121019
  Receipt Date: 20131008
  Transmission Date: 20140711
  Serious: Yes (Life-Threatening, Disabling, Other)
  Sender: FDA-Public Use
  Company Number: AUR-APL-2012-04379

PATIENT
  Age: 50 Year
  Sex: Female
  Weight: 50 kg

DRUGS (1)
  1. RISPERIDONE [Suspect]
     Indication: ABNORMAL BEHAVIOUR
     Dates: start: 20080924

REACTIONS (15)
  - Abnormal behaviour [None]
  - Extrapyramidal disorder [None]
  - Pleurothotonus [None]
  - Aphasia [None]
  - Dystonia [None]
  - Drooling [None]
  - Dyspnoea [None]
  - Tardive dyskinesia [None]
  - Confusional state [None]
  - Salivary hypersecretion [None]
  - Spasmodic dysphonia [None]
  - Emotional distress [None]
  - Sedation [None]
  - Somnolence [None]
  - Muscle spasticity [None]
